FAERS Safety Report 6853604-0 (Version None)
Quarter: 2010Q3

REPORT INFORMATION
  Report Type: 
  Country: None (occurrence: None)
  Receive Date: 20100717
  Receipt Date: 20071212
  Transmission Date: 20110219
  Serious: No
  Sender: FDA-Public Use
  Company Number: US-PFIZER INC-2007106285

PATIENT
  Sex: Male
  Weight: 93.2 kg

DRUGS (5)
  1. CHANTIX [Suspect]
     Indication: SMOKING CESSATION THERAPY
     Dates: start: 20071003
  2. LAMISIL [Concomitant]
  3. LOTREL [Concomitant]
  4. MERCAPTOPURINE [Concomitant]
  5. METRONIDAZOLE [Concomitant]

REACTIONS (1)
  - SOMNOLENCE [None]
